FAERS Safety Report 15614742 (Version 1)
Quarter: 2018Q4

REPORT INFORMATION
  Report Type: Report from Study
  Country: None (occurrence: DE)
  Receive Date: 20181113
  Receipt Date: 20181113
  Transmission Date: 20190205
  Serious: Yes (Hospitalization)
  Sender: FDA-Public Use
  Company Number: DE-ABBVIE-18K-062-2548630-00

PATIENT
  Age: 53 Year
  Sex: Female
  Weight: 60 kg

DRUGS (4)
  1. EUTHYROX [Concomitant]
     Active Substance: LEVOTHYROXINE SODIUM
     Indication: PRODUCT USED FOR UNKNOWN INDICATION
     Dates: start: 1993
  2. HUMIRA [Suspect]
     Active Substance: ADALIMUMAB
     Indication: CROHN^S DISEASE
     Route: 058
     Dates: start: 2016, end: 20181008
  3. METOPROLOLSUCCINAT DURA [Concomitant]
     Indication: CROHN^S DISEASE
     Dates: start: 2015
  4. JODID [Concomitant]
     Active Substance: IODINE
     Indication: PRODUCT USED FOR UNKNOWN INDICATION
     Dates: start: 1993

REACTIONS (7)
  - Sleep disorder [Not Recovered/Not Resolved]
  - Dyspnoea [Unknown]
  - Alopecia areata [Not Recovered/Not Resolved]
  - Psoriasis [Not Recovered/Not Resolved]
  - Cough [Recovered/Resolved]
  - Alopecia [Not Recovered/Not Resolved]
  - Bone pain [Recovered/Resolved]

NARRATIVE: CASE EVENT DATE: 201711
